FAERS Safety Report 5503389-5 (Version None)
Quarter: 2007Q4

REPORT INFORMATION
  Report Type: 
  Country: None (occurrence: None)
  Receive Date: 20071031
  Receipt Date: 20071019
  Transmission Date: 20080405
  Serious: Yes (Other)
  Sender: FDA-Public Use
  Company Number: GB-PFIZER INC-2007088616

PATIENT
  Age: 57 Year
  Sex: Male
  Weight: 83 kg

DRUGS (4)
  1. CHAMPIX [Suspect]
     Route: 048
     Dates: start: 20070731, end: 20070814
  2. NABUMETONE [Concomitant]
     Route: 048
  3. OMEPRAZOLE [Concomitant]
     Dates: start: 20040325
  4. TRAMADOL HCL [Concomitant]
     Dates: start: 20060113

REACTIONS (3)
  - BLISTER [None]
  - OEDEMA PERIPHERAL [None]
  - RASH GENERALISED [None]
